FAERS Safety Report 6219268-4 (Version None)
Quarter: 2009Q2

REPORT INFORMATION
  Report Type: 
  Country: None (occurrence: None)
  Receive Date: 20090609
  Receipt Date: 20090529
  Transmission Date: 20091009
  Serious: Yes (Other)
  Sender: FDA-Public Use
  Company Number: DE-JNJFOC-20080605969

PATIENT

DRUGS (1)
  1. INFLIXIMAB [Suspect]
     Indication: CROHN'S DISEASE
     Route: 042

REACTIONS (3)
  - ABSCESS [None]
  - CROHN'S DISEASE [None]
  - FISTULA [None]
